FAERS Safety Report 22060975 (Version 3)
Quarter: 2023Q2

REPORT INFORMATION
  Report Type: Spontaneous
  Country: US (occurrence: US)
  Receive Date: 20230303
  Receipt Date: 20230629
  Transmission Date: 20230721
  Serious: No
  Sender: FDA-Public Use
  Company Number: US-PFIZER INC-PV202300039719

PATIENT
  Age: 80 Year
  Sex: Female

DRUGS (2)
  1. INLYTA [Suspect]
     Active Substance: AXITINIB
     Dosage: UNK
     Dates: end: 202304
  2. KEYTRUDA [Concomitant]
     Active Substance: PEMBROLIZUMAB
     Dosage: UNK

REACTIONS (7)
  - Headache [Unknown]
  - Sinus headache [Unknown]
  - Tongue discomfort [Unknown]
  - Alopecia [Unknown]
  - Stress [Unknown]
  - Hepatic enzyme increased [Not Recovered/Not Resolved]
  - Glossodynia [Unknown]

NARRATIVE: CASE EVENT DATE: 20230101
